FAERS Safety Report 8830481 (Version 2)
Quarter: 2012Q4

REPORT INFORMATION
  Report Type: 
  Country: AE (occurrence: AE)
  Receive Date: 20121009
  Receipt Date: 20121022
  Transmission Date: 20130627
  Serious: Yes (Hospitalization)
  Sender: FDA-Public Use
  Company Number: AE-ELI_LILLY_AND_COMPANY-AE201209007913

PATIENT
  Age: 30 Year
  Sex: Female

DRUGS (2)
  1. DULOXETINE HYDROCHLORIDE [Suspect]
     Indication: DEPRESSION
     Dosage: 60 mg, qd
     Route: 048
     Dates: start: 20120924, end: 20120924
  2. SEROQUEL [Concomitant]
     Dosage: 25 mg, UNK

REACTIONS (1)
  - Hypersensitivity [Recovered/Resolved]
